FAERS Safety Report 9668113 (Version 2)
Quarter: 2013Q4

REPORT INFORMATION
  Report Type: Spontaneous
  Country: US (occurrence: None)
  Receive Date: 20131101
  Receipt Date: 20131112
  Transmission Date: 20140711
  Serious: Yes (Death)
  Sender: FDA-Public Use
  Company Number: 20130609

PATIENT
  Age: 23 Month
  Sex: Male

DRUGS (3)
  1. PHENYTOIN SODIUM [Suspect]
     Indication: PYREXIA
  2. PHENYTOIN SODIUM [Suspect]
     Indication: EPILEPSY
  3. CARBAMAZEPINE [Suspect]
     Indication: EPILEPSY

REACTIONS (8)
  - Toxicity to various agents [None]
  - Cyanosis [None]
  - Unresponsive to stimuli [None]
  - Cardio-respiratory arrest [None]
  - Coma scale abnormal [None]
  - Drug interaction [None]
  - Overdose [None]
  - Pyrexia [None]
